FAERS Safety Report 18718729 (Version 4)
Quarter: 2021Q1

REPORT INFORMATION
  Report Type: Spontaneous
  Country: GB (occurrence: GB)
  Receive Date: 20210108
  Receipt Date: 20210129
  Transmission Date: 20210419
  Serious: Yes (Death, Other)
  Sender: FDA-Public Use
  Company Number: GB-009507513-2101GBR003796

PATIENT
  Age: 28 Year
  Sex: Male

DRUGS (6)
  1. DRONABINOL. [Suspect]
     Active Substance: DRONABINOL
     Dosage: UNK
  2. PREGABALIN. [Suspect]
     Active Substance: PREGABALIN
     Dosage: UNK
  3. MIRTAZAPINE. [Suspect]
     Active Substance: MIRTAZAPINE
     Dosage: UNK
  4. ALCOHOL. [Suspect]
     Active Substance: ALCOHOL
     Dosage: UNK
  5. DIAZEPAM. [Suspect]
     Active Substance: DIAZEPAM
     Indication: PRODUCT USED FOR UNKNOWN INDICATION
     Dosage: UNK
  6. ETIZOLAM [Suspect]
     Active Substance: ETIZOLAM
     Indication: PRODUCT USED FOR UNKNOWN INDICATION
     Dosage: UNK

REACTIONS (2)
  - Drug abuse [Unknown]
  - Toxicity to various agents [Fatal]
